FAERS Safety Report 22267499 (Version 4)
Quarter: 2023Q2

REPORT INFORMATION
  Report Type: Spontaneous
  Country: US (occurrence: US)
  Receive Date: 20230429
  Receipt Date: 20230615
  Transmission Date: 20230721
  Serious: Yes (Other)
  Sender: FDA-Public Use
  Company Number: US-PFIZER INC-PV202300074805

PATIENT
  Age: 63 Year
  Sex: Male

DRUGS (3)
  1. INLYTA [Suspect]
     Active Substance: AXITINIB
     Dosage: 5 MG
     Dates: end: 20230425
  2. INLYTA [Suspect]
     Active Substance: AXITINIB
     Dosage: UNK
     Dates: start: 20230508, end: 202305
  3. INLYTA [Suspect]
     Active Substance: AXITINIB
     Dosage: 3 TABLETS TWICE DAILY
     Route: 048

REACTIONS (7)
  - Oral surgery [Unknown]
  - Nausea [Unknown]
  - Onychomadesis [Unknown]
  - Headache [Unknown]
  - Irritability [Unknown]
  - Nausea [Unknown]
  - Blood pressure increased [Unknown]

NARRATIVE: CASE EVENT DATE: 20230501
